FAERS Safety Report 23201909 (Version 1)
Quarter: 2023Q4

REPORT INFORMATION
  Report Type: Spontaneous
  Country: US (occurrence: US)
  Receive Date: 20231120
  Receipt Date: 20231120
  Transmission Date: 20240110
  Serious: No
  Sender: FDA-Public Use
  Company Number: US-SANDOZ-SDZ2023US055568

PATIENT
  Sex: Female

DRUGS (1)
  1. ESTRADIOL [Suspect]
     Active Substance: ESTRADIOL
     Indication: Product used for unknown indication
     Dosage: UNK
     Route: 065

REACTIONS (10)
  - Pruritus [Unknown]
  - Peripheral swelling [Unknown]
  - Rash erythematous [Unknown]
  - Mouth swelling [Unknown]
  - Paraesthesia oral [Unknown]
  - Throat tightness [Unknown]
  - Breast tenderness [Unknown]
  - Drug hypersensitivity [Unknown]
  - Breast pain [Unknown]
  - Breast discharge [Unknown]
